FAERS Safety Report 21119526 (Version 2)
Quarter: 2022Q3

REPORT INFORMATION
  Report Type: Spontaneous
  Country: JP (occurrence: None)
  Receive Date: 20220722
  Receipt Date: 20220729
  Transmission Date: 20221026
  Serious: Yes (Other)
  Sender: FDA-Public Use
  Company Number: 2022A260754

PATIENT
  Age: 65 Year
  Sex: Male

DRUGS (4)
  1. CRESTOR [Suspect]
     Active Substance: ROSUVASTATIN CALCIUM
     Dosage: DOSE UNKNOWN
     Route: 048
  2. AZILSARTAN KAMEDOXOMIL [Concomitant]
     Active Substance: AZILSARTAN KAMEDOXOMIL
     Dosage: DOSE UNKNOWN
     Route: 048
  3. AMLODIPINE [Concomitant]
     Active Substance: AMLODIPINE BESYLATE
     Dosage: DOSE UNKNOWN
     Route: 048
  4. TOPIROXOSTAT [Concomitant]
     Active Substance: TOPIROXOSTAT
     Dosage: DOSE UNKNOWN
     Route: 048

REACTIONS (1)
  - Renal impairment [Unknown]
